FAERS Safety Report 9330292 (Version 2)
Quarter: 2013Q2

REPORT INFORMATION
  Report Type: Spontaneous
  Country: HU (occurrence: HU)
  Receive Date: 20130605
  Receipt Date: 20130607
  Transmission Date: 20140414
  Serious: Yes (Hospitalization)
  Sender: FDA-Public Use
  Company Number: HU-AMGEN-HUNSP2013038995

PATIENT
  Age: 70 Year
  Sex: Female
  Weight: 48 kg

DRUGS (5)
  1. PROLIA [Suspect]
     Indication: OSTEOPOROSIS
     Dosage: 60 MG, Q6MO
     Route: 058
     Dates: start: 20130516
  2. FENTANYL [Concomitant]
     Dosage: 25 MUG, QH
  3. PROPANOLOL                         /00030001/ [Concomitant]
     Indication: HYPERTENSION
     Dosage: 20 MG, BID
  4. KREON                              /00014701/ [Concomitant]
     Indication: HEPATITIS
     Dosage: 25000 G, TID
  5. CETIRIZINE [Concomitant]
     Indication: HYPERSENSITIVITY
     Dosage: 10 MG, QD

REACTIONS (2)
  - Tetany [Recovered/Resolved]
  - Hypocalcaemia [Recovered/Resolved]
